FAERS Safety Report 8169748-X (Version None)
Quarter: 2012Q1

REPORT INFORMATION
  Report Type: 
  Country: None (occurrence: None)
  Receive Date: 20120222
  Receipt Date: 20120213
  Transmission Date: 20120608
  Serious: Yes (Other)
  Sender: FDA-Public Use
  Company Number: TCI2011A04169

PATIENT
  Age: 80 Year
  Sex: Male

DRUGS (8)
  1. PURSENID(SENNOSIDE MB CALCIUM) [Concomitant]
  2. AMARYL [Concomitant]
  3. OLMESARTAN MEDOXOMIL [Concomitant]
  4. ACTOS [Suspect]
     Indication: DIABETES MELLITUS
     Dosage: 15 MG (15 MG, 1 D) 1) PER ORAL, 30 MG (30 MG,1 D) 1) PER ORAL
     Route: 048
     Dates: start: 20071011, end: 20080107
  5. ACTOS [Suspect]
     Indication: DIABETES MELLITUS
     Dosage: 15 MG (15 MG, 1 D) 1) PER ORAL, 30 MG (30 MG,1 D) 1) PER ORAL
     Route: 048
     Dates: start: 20080108, end: 20110206
  6. TSUMURA BAXUMONDOUTO(HERBAL EXTRACT NOS) [Concomitant]
  7. VOLTAREN [Concomitant]
  8. LENDORM [Concomitant]

REACTIONS (3)
  - COLONIC POLYP [None]
  - BLADDER NEOPLASM [None]
  - GOITRE [None]
